FAERS Safety Report 5690196-6 (Version None)
Quarter: 2008Q2

REPORT INFORMATION
  Report Type: 
  Country: None (occurrence: None)
  Receive Date: 20080401
  Receipt Date: 20080327
  Transmission Date: 20081010
  Serious: Yes (Hospitalization)
  Sender: FDA-Public Use
  Company Number: FR-BRISTOL-MYERS SQUIBB COMPANY-14129159

PATIENT
  Age: 45 Year
  Sex: Female

DRUGS (6)
  1. ABILIFY [Suspect]
     Indication: SCHIZOPHRENIA
     Dates: start: 20070101, end: 20070602
  2. RAMIPRIL [Suspect]
     Dates: start: 20060101, end: 20070602
  3. RIVOTRIL [Suspect]
     Indication: MYOCLONUS
  4. PREVISCAN [Suspect]
     Indication: VENOUS THROMBOSIS
     Dosage: 1 DOSAGE FORM = 0.75(UNITS NOT MENTIONED)
     Dates: end: 20070602
  5. HERCEPTIN [Suspect]
     Indication: BREAST CANCER IN SITU
     Route: 042
  6. ARIMIDEX [Suspect]
     Indication: BREAST CANCER IN SITU
     Dates: end: 20070602

REACTIONS (1)
  - BONE MARROW FAILURE [None]
